FAERS Safety Report 4652476-2 (Version None)
Quarter: 2005Q2

REPORT INFORMATION
  Report Type: 
  Country: None (occurrence: None)
  Receive Date: 20050502
  Receipt Date: 20050413
  Transmission Date: 20051028
  Serious: Yes (Other)
  Sender: FDA-Public Use
  Company Number: TRP_0091_2005

PATIENT
  Age: 44 Year
  Sex: Female
  Weight: 73.9363 kg

DRUGS (7)
  1. RIBASPHERE [Suspect]
     Indication: HEPATITIS C
     Dosage: 1000 MG QDAY PO
     Route: 048
     Dates: start: 20041105
  2. PEG-INTRON [Suspect]
     Indication: HEPATITIS C
     Dosage: 120 MCG QWK SC
     Route: 058
     Dates: start: 20041105
  3. DARVOCET-N 100 [Concomitant]
  4. DIAZEPAM [Concomitant]
  5. TYLENOL [Concomitant]
  6. ZOLOFT [Concomitant]
  7. TRAZODONE [Concomitant]

REACTIONS (3)
  - CONDITION AGGRAVATED [None]
  - DIABETES MELLITUS [None]
  - HEADACHE [None]
